FAERS Safety Report 22638988 (Version 2)
Quarter: 2023Q2

REPORT INFORMATION
  Report Type: Report from Study
  Country: US (occurrence: US)
  Receive Date: 20230626
  Receipt Date: 20230627
  Transmission Date: 20230722
  Serious: No
  Sender: FDA-Public Use
  Company Number: US-002147023-NVSC2023US142639

PATIENT
  Sex: Female

DRUGS (6)
  1. HYDROXYCHLOROQUINE [Suspect]
     Active Substance: HYDROXYCHLOROQUINE
     Indication: Psoriasis
     Dosage: UNK
     Route: 065
  2. HYDROXYCHLOROQUINE [Suspect]
     Active Substance: HYDROXYCHLOROQUINE
     Indication: Psoriatic arthropathy
  3. NAPROXEN [Suspect]
     Active Substance: NAPROXEN
     Indication: Psoriasis
     Dosage: UNK
     Route: 065
  4. NAPROXEN [Suspect]
     Active Substance: NAPROXEN
     Indication: Psoriatic arthropathy
  5. IBUPROFEN [Suspect]
     Active Substance: IBUPROFEN
     Indication: Psoriasis
     Dosage: UNK
     Route: 065
  6. IBUPROFEN [Suspect]
     Active Substance: IBUPROFEN
     Indication: Psoriatic arthropathy

REACTIONS (16)
  - Musculoskeletal stiffness [Unknown]
  - Intervertebral disc degeneration [Unknown]
  - Back pain [Unknown]
  - Joint stiffness [Unknown]
  - Night sweats [Unknown]
  - Dyspepsia [Unknown]
  - Constipation [Unknown]
  - Hypoaesthesia [Unknown]
  - Paraesthesia [Unknown]
  - Abdominal pain [Unknown]
  - Rash [Unknown]
  - Fatigue [Unknown]
  - Headache [Unknown]
  - Arthritis [Unknown]
  - Psoriasis [Unknown]
  - Drug effect less than expected [Unknown]
